FAERS Safety Report 9323810 (Version 1)
Quarter: 2013Q2

REPORT INFORMATION
  Report Type: Spontaneous
  Country: FR (occurrence: FR)
  Receive Date: 20130603
  Receipt Date: 20130603
  Transmission Date: 20140414
  Serious: Yes (Life-Threatening, Hospitalization)
  Sender: FDA-Public Use
  Company Number: FR-B.I. PHARMACEUTICALS,INC./RIDGEFIELD-2012-FF-01544FF

PATIENT
  Age: 77 Year
  Sex: Male

DRUGS (2)
  1. PRADAXA [Suspect]
     Dosage: 75 MG
     Route: 048
     Dates: start: 20120411, end: 20120415
  2. PROFENID [Suspect]
     Dosage: 150 MG
     Route: 048
     Dates: start: 20120412, end: 20120415

REACTIONS (2)
  - Large intestinal obstruction [Recovered/Resolved]
  - Large intestinal stenosis [Recovered/Resolved]
